FAERS Safety Report 16593029 (Version 2)
Quarter: 2019Q3

REPORT INFORMATION
  Report Type: Spontaneous
  Country: AT (occurrence: AT)
  Receive Date: 20190718
  Receipt Date: 20190812
  Transmission Date: 20191004
  Serious: Yes (Other)
  Sender: FDA-Public Use
  Company Number: AT-BAUSCH-BL-2019-020405

PATIENT
  Age: 79 Year
  Sex: Female

DRUGS (14)
  1. IRINOTECAN HYDROCHLORIDE. [Suspect]
     Active Substance: IRINOTECAN HYDROCHLORIDE
     Indication: METASTASIS
     Route: 065
     Dates: start: 201801
  2. TIPIRACIL [Concomitant]
     Active Substance: TIPIRACIL
     Indication: PRODUCT USED FOR UNKNOWN INDICATION
  3. TRIFLURIDINE. [Concomitant]
     Active Substance: TRIFLURIDINE
     Indication: PRODUCT USED FOR UNKNOWN INDICATION
  4. OXALIPLATIN. [Suspect]
     Active Substance: OXALIPLATIN
     Indication: ADENOCARCINOMA OF COLON
  5. AFLIBERCEPT [Suspect]
     Active Substance: AFLIBERCEPT
     Indication: METASTASIS
     Route: 065
     Dates: start: 201801
  6. CAPECITABINE. [Suspect]
     Active Substance: CAPECITABINE
     Indication: ADENOCARCINOMA OF COLON
     Route: 065
     Dates: start: 201208, end: 2012
  7. LEUCOVORIN. [Suspect]
     Active Substance: LEUCOVORIN
     Indication: METASTASIS
     Route: 065
     Dates: start: 201711, end: 201801
  8. LEUCOVORIN. [Suspect]
     Active Substance: LEUCOVORIN
     Indication: ADENOCARCINOMA OF COLON
  9. BEVACIZUMAB. [Suspect]
     Active Substance: BEVACIZUMAB
     Indication: ADENOCARCINOMA OF COLON
     Route: 065
     Dates: start: 201711, end: 201801
  10. FLUOROURACIL. [Suspect]
     Active Substance: FLUOROURACIL
     Indication: METASTASIS
     Route: 065
     Dates: start: 201711
  11. OXALIPLATIN. [Suspect]
     Active Substance: OXALIPLATIN
     Indication: METASTASIS
     Route: 065
     Dates: start: 201711, end: 201801
  12. CAPECITABINE. [Suspect]
     Active Substance: CAPECITABINE
     Dosage: DOSE REDUCED?AND SUBSEQUENTLY WITHDRAWN
     Route: 065
     Dates: start: 2012, end: 2012
  13. 5-FU [Concomitant]
     Active Substance: FLUOROURACIL
     Indication: PRODUCT USED FOR UNKNOWN INDICATION
     Dates: start: 201801
  14. FLUOROURACIL. [Suspect]
     Active Substance: FLUOROURACIL
     Indication: ADENOCARCINOMA OF COLON

REACTIONS (6)
  - Metastases to liver [Unknown]
  - Diarrhoea [Recovered/Resolved]
  - Clostridium difficile infection [Recovered/Resolved]
  - Transient ischaemic attack [Recovered/Resolved]
  - Neutropenia [Recovered/Resolved]
  - Pneumonia [Unknown]

NARRATIVE: CASE EVENT DATE: 2012
